FAERS Safety Report 15344643 (Version 1)
Quarter: 2018Q3

REPORT INFORMATION
  Report Type: Spontaneous
  Country: US (occurrence: US)
  Receive Date: 20180903
  Receipt Date: 20180903
  Transmission Date: 20181010
  Serious: Yes (Other)
  Sender: FDA-Public Use
  Company Number: US-TEVA-2018-US-950585

PATIENT
  Sex: Male

DRUGS (1)
  1. CELECOXIB. [Suspect]
     Active Substance: CELECOXIB

REACTIONS (1)
  - Hypersensitivity [Unknown]
